FAERS Safety Report 16858580 (Version 1)
Quarter: 2019Q3

REPORT INFORMATION
  Report Type: Spontaneous
  Country: BE (occurrence: BE)
  Receive Date: 20190926
  Receipt Date: 20190926
  Transmission Date: 20191005
  Serious: Yes (Other)
  Sender: FDA-Public Use
  Company Number: PHHY2019BE220989

PATIENT
  Sex: Female

DRUGS (1)
  1. FEMARA [Suspect]
     Active Substance: LETROZOLE
     Indication: BREAST CANCER RECURRENT
     Route: 065

REACTIONS (18)
  - Muscle spasms [Recovering/Resolving]
  - Speech disorder [Recovering/Resolving]
  - Depression [Recovering/Resolving]
  - Breast cancer recurrent [Unknown]
  - Gait disturbance [Recovering/Resolving]
  - Balance disorder [Recovering/Resolving]
  - Hot flush [Recovering/Resolving]
  - Insomnia [Recovering/Resolving]
  - Hypoaesthesia [Recovering/Resolving]
  - Confusional state [Recovering/Resolving]
  - Malaise [Recovering/Resolving]
  - Joint stiffness [Recovering/Resolving]
  - Blood cholesterol increased [Recovering/Resolving]
  - Oedema peripheral [Recovering/Resolving]
  - Hallucination [Recovering/Resolving]
  - Myalgia [Recovering/Resolving]
  - Neuropathy peripheral [Recovering/Resolving]
  - Pain [Recovering/Resolving]
